FAERS Safety Report 8268992-0 (Version None)
Quarter: 2012Q1

REPORT INFORMATION
  Report Type: 
  Country: None (occurrence: None)
  Receive Date: 20120327
  Receipt Date: 20090730
  Transmission Date: 20120608
  Serious: Yes (Hospitalization)
  Sender: FDA-Public Use
  Company Number: PHEH2009US08509

PATIENT

DRUGS (13)
  1. MECLIZINE [Concomitant]
  2. TIZANIDINE HCL [Concomitant]
  3. METOPROLOL TARTRATE [Concomitant]
  4. GLEEVEC [Suspect]
     Indication: CHRONIC MYELOID LEUKAEMIA
  5. TYLENOL W/ CODEINE NO. 3 [Concomitant]
  6. NEURONTIN [Concomitant]
  7. DILAUDID (HYDROMORPHONE HYDROHCLORIDE) [Concomitant]
  8. METFORMIN HCL [Concomitant]
  9. SIMVASTATIN [Concomitant]
  10. MORPHINE SULFATE INJ [Concomitant]
  11. GABAPENTIN [Concomitant]
  12. ALLOPURINOL [Concomitant]
  13. FENTANYL [Concomitant]

REACTIONS (1)
  - PAIN [None]
